APPROVED DRUG PRODUCT: EPLERENONE
Active Ingredient: EPLERENONE
Strength: 50MG
Dosage Form/Route: TABLET;ORAL
Application: A214663 | Product #002 | TE Code: AB
Applicant: RISING PHARMA HOLDINGS INC
Approved: Mar 23, 2022 | RLD: No | RS: No | Type: RX